FAERS Safety Report 19270240 (Version 1)
Quarter: 2021Q2

REPORT INFORMATION
  Report Type: Spontaneous
  Country: CA (occurrence: CA)
  Receive Date: 20210518
  Receipt Date: 20210518
  Transmission Date: 20210717
  Serious: Yes (Death)
  Sender: FDA-Public Use
  Company Number: CA-TEVA-2021-CA-1911809

PATIENT
  Age: 63 Year
  Sex: Male

DRUGS (7)
  1. BASILIXIMAB [Concomitant]
     Active Substance: BASILIXIMAB
     Route: 065
  2. CICLOSPORIN [Suspect]
     Active Substance: CYCLOSPORINE
     Indication: GRAFT VERSUS HOST DISEASE
     Route: 065
  3. IMMUNE GLOBULIN (HUMAN) [Suspect]
     Active Substance: HUMAN IMMUNOGLOBULIN G
     Indication: ACUTE GRAFT VERSUS HOST DISEASE
     Route: 042
  4. ANTITHYMOCYTE IMMUNOGLOBULIN [Suspect]
     Active Substance: THYMOCYTE IMMUNE GLOBULIN NOS
     Indication: GRAFT VERSUS HOST DISEASE
     Route: 065
  5. METHOTREXATE. [Suspect]
     Active Substance: METHOTREXATE
     Indication: GRAFT VERSUS HOST DISEASE
     Route: 037
  6. IMMUNE GLOBULIN (HUMAN) [Suspect]
     Active Substance: HUMAN IMMUNOGLOBULIN G
     Route: 042
  7. CICLOSPORIN [Suspect]
     Active Substance: CYCLOSPORINE
     Route: 065

REACTIONS (2)
  - Product use in unapproved indication [Fatal]
  - Drug ineffective for unapproved indication [Fatal]
